FAERS Safety Report 7360863-7 (Version None)
Quarter: 2011Q1

REPORT INFORMATION
  Report Type: 
  Country: None (occurrence: None)
  Receive Date: 20110318
  Receipt Date: 20110308
  Transmission Date: 20110831
  Serious: Yes (Hospitalization)
  Sender: FDA-Public Use
  Company Number: FR-KINGPHARMUSA00001-K201100236

PATIENT
  Age: 74 Year
  Sex: Male

DRUGS (15)
  1. BEHEPAN [Concomitant]
     Dosage: UNK
  2. LEVOTHYROXINE SODIUM [Concomitant]
     Dosage: UNK
     Dates: start: 20100501
  3. IMDUR [Concomitant]
     Dosage: UNK
  4. ALTACE [Suspect]
     Dosage: UNK
     Dates: start: 20100713
  5. PROSCAR [Concomitant]
     Dosage: UNK
     Dates: start: 20100111
  6. ALFADIL [Concomitant]
     Dosage: UNK
     Dates: start: 20100601
  7. ALTACE [Suspect]
     Dosage: 10 MG, QD
     Route: 048
     Dates: end: 20100711
  8. FUROSEMIDE [Suspect]
     Dosage: 40 MG, QD
  9. METFORMIN HCL [Concomitant]
     Dosage: UNK
     Dates: end: 20100712
  10. WARAN [Concomitant]
     Dosage: UNK
  11. BISOPROLOL [Concomitant]
     Dosage: UNK
  12. AMIODARONE HCL [Concomitant]
     Dosage: UNK
     Dates: start: 20100708
  13. SIMVASTATIN [Concomitant]
     Dosage: UNK
  14. NITROMEX [Concomitant]
     Dosage: UNK
  15. SERENOA REPENS [Concomitant]
     Dosage: UNK

REACTIONS (3)
  - DEHYDRATION [None]
  - RENAL FAILURE ACUTE [None]
  - VENTRICULAR TACHYCARDIA [None]
